FAERS Safety Report 5585718-X (Version None)
Quarter: 2008Q1

REPORT INFORMATION
  Report Type: 
  Country: None (occurrence: None)
  Receive Date: 20080109
  Receipt Date: 20080102
  Transmission Date: 20080703
  Serious: Yes (Hospitalization)
  Sender: FDA-Public Use
  Company Number: US-JNJFOC-20080100805

PATIENT
  Sex: Male
  Weight: 92.99 kg

DRUGS (2)
  1. TRAMADOL HYDROCHLORIDE [Suspect]
     Indication: PAIN
     Route: 048
  2. RELAFEN [Concomitant]
     Indication: PAIN
     Route: 048

REACTIONS (3)
  - CHEST PAIN [None]
  - MALAISE [None]
  - NAUSEA [None]
